FAERS Safety Report 10756623 (Version 2)
Quarter: 2015Q1

REPORT INFORMATION
  Report Type: Report from Study
  Country: IL (occurrence: IL)
  Receive Date: 20150202
  Receipt Date: 20150218
  Transmission Date: 20150721
  Serious: Yes (Hospitalization, Other)
  Sender: FDA-Public Use
  Company Number: PHHY2015IL010697

PATIENT
  Age: 69 Year
  Sex: Male
  Weight: 52 kg

DRUGS (1)
  1. SANDOSTATIN LAR DEPOT [Suspect]
     Active Substance: OCTREOTIDE ACETATE
     Indication: CARCINOID TUMOUR
     Dosage: 30 MG, Q4W
     Route: 030
     Dates: start: 20130306

REACTIONS (5)
  - Muscular weakness [Unknown]
  - General physical condition abnormal [Unknown]
  - Cerebrovascular accident [Not Recovered/Not Resolved]
  - Hemiparesis [Not Recovered/Not Resolved]
  - Speech disorder [Unknown]

NARRATIVE: CASE EVENT DATE: 20150125
